FAERS Safety Report 12088018 (Version 1)
Quarter: 2016Q1

REPORT INFORMATION
  Report Type: Spontaneous
  Country: FR (occurrence: FR)
  Receive Date: 20160217
  Receipt Date: 20160217
  Transmission Date: 20160526
  Serious: Yes (Death, Hospitalization, Other)
  Sender: FDA-Public Use
  Company Number: FR-TAKEDA-2016TUS002823

PATIENT
  Age: 16 Year
  Sex: Female

DRUGS (1)
  1. COLCHICINE. [Suspect]
     Active Substance: COLCHICINE
     Indication: FAMILIAL MEDITERRANEAN FEVER
     Dosage: 1 MG, UNK
     Route: 048

REACTIONS (6)
  - Cardiogenic shock [Fatal]
  - Suicide attempt [Unknown]
  - Intentional overdose [Unknown]
  - Respiratory distress [Fatal]
  - Toxicity to various agents [Unknown]
  - Multiple organ dysfunction syndrome [Unknown]
